FAERS Safety Report 11261475 (Version 1)
Quarter: 2015Q3

REPORT INFORMATION
  Report Type: Spontaneous
  Country: DE (occurrence: DE)
  Receive Date: 20150710
  Receipt Date: 20150710
  Transmission Date: 20151125
  Serious: Yes (Other)
  Sender: FDA-Public Use
  Company Number: DE-ACTAVIS-2015-14128

PATIENT
  Age: 22 Year
  Sex: Female
  Weight: 55 kg

DRUGS (6)
  1. PANTOPRAZOLE SODIUM. [Suspect]
     Active Substance: PANTOPRAZOLE SODIUM
     Dosage: 2 1 DAY, UNKNOWN
     Route: 048
  2. PANTOPRAZOLE SODIUM. [Suspect]
     Active Substance: PANTOPRAZOLE SODIUM
     Dosage: 160 MG, UNKNOWN
     Route: 048
  3. PANTOPRAZOLE SODIUM. [Suspect]
     Active Substance: PANTOPRAZOLE SODIUM
     Dosage: 40 MG, UNKNOWN
     Route: 048
  4. ESOMEPRAZOL ACTAVIS [Suspect]
     Active Substance: ESOMEPRAZOLE
     Dosage: 20 MG, DAILY
     Route: 048
     Dates: start: 20150507
  5. PANTOPRAZOLE SODIUM. [Suspect]
     Active Substance: PANTOPRAZOLE SODIUM
     Indication: ABDOMINAL PAIN UPPER
     Dosage: 80 MG, DAILY
     Route: 048
     Dates: start: 20150422
  6. ESOMEPRAZOL [Suspect]
     Active Substance: ESOMEPRAZOLE
     Indication: ABDOMINAL PAIN UPPER
     Dosage: 40 MG, DAILY
     Route: 048
     Dates: start: 20150507

REACTIONS (13)
  - Epistaxis [Recovering/Resolving]
  - Depression [Recovered/Resolved]
  - Tinnitus [Recovered/Resolved with Sequelae]
  - Dizziness [Recovering/Resolving]
  - Mood swings [Recovered/Resolved]
  - Abdominal pain upper [Recovered/Resolved]
  - Fatigue [Recovering/Resolving]
  - Somnolence [Recovering/Resolving]
  - Hyperhidrosis [Recovered/Resolved]
  - Initial insomnia [Recovering/Resolving]
  - Palpitations [Recovered/Resolved]
  - Diarrhoea [Recovered/Resolved]
  - Middle insomnia [Recovering/Resolving]

NARRATIVE: CASE EVENT DATE: 20150423
